FAERS Safety Report 24614874 (Version 2)
Quarter: 2024Q4

REPORT INFORMATION
  Report Type: Spontaneous
  Country: PL (occurrence: PL)
  Receive Date: 20241113
  Receipt Date: 20241204
  Transmission Date: 20250115
  Serious: Yes (Hospitalization, Other)
  Sender: MYLAN
  Company Number: PL-AUROBINDO-AUR-APL-2024-051437

PATIENT
  Age: 20 Year
  Sex: Male

DRUGS (1)
  1. FENTANYL [Suspect]
     Active Substance: FENTANYL
     Indication: Product used for unknown indication
     Dosage: UNK
     Route: 065

REACTIONS (7)
  - Pneumonia aspiration [Unknown]
  - Cough [Unknown]
  - Toxicity to various agents [Unknown]
  - Dyspnoea [Unknown]
  - Headache [Unknown]
  - Drug abuse [Unknown]
  - Intentional product misuse [Unknown]
